FAERS Safety Report 17204487 (Version 1)
Quarter: 2019Q4

REPORT INFORMATION
  Report Type: Spontaneous
  Country: FR (occurrence: FR)
  Receive Date: 20191226
  Receipt Date: 20191226
  Transmission Date: 20200122
  Serious: Yes (Other)
  Sender: FDA-Public Use
  Company Number: FR-JNJFOC-20191234778

PATIENT
  Age: 37 Year
  Sex: Female

DRUGS (1)
  1. REMICADE [Suspect]
     Active Substance: INFLIXIMAB
     Indication: PSORIASIS
     Route: 042
     Dates: start: 20170911, end: 20181005

REACTIONS (3)
  - Off label use [Unknown]
  - Product use issue [Unknown]
  - Legionella infection [Recovered/Resolved]

NARRATIVE: CASE EVENT DATE: 20170911
